FAERS Safety Report 7002217-9 (Version None)
Quarter: 2010Q3

REPORT INFORMATION
  Report Type: 
  Country: None (occurrence: None)
  Receive Date: 20100920
  Receipt Date: 20070614
  Transmission Date: 20110219
  Serious: Yes (Other)
  Sender: FDA-Public Use
  Company Number: US-ASTRAZENECA-2006UW08382

PATIENT
  Age: 38 Year
  Sex: Female
  Weight: 91.2 kg

DRUGS (15)
  1. SEROQUEL [Suspect]
     Indication: DEPRESSION
     Route: 048
     Dates: start: 20040701, end: 20061201
  2. SEROQUEL [Suspect]
     Indication: BIPOLAR DISORDER
     Route: 048
     Dates: start: 20040701, end: 20061201
  3. SEROQUEL [Suspect]
     Indication: SCHIZOPHRENIA
     Route: 048
     Dates: start: 20040701, end: 20061201
  4. SEROQUEL [Suspect]
     Indication: HALLUCINATION, AUDITORY
     Route: 048
     Dates: start: 20040701, end: 20061201
  5. SEROQUEL [Suspect]
     Route: 048
     Dates: start: 20050101, end: 20051212
  6. SEROQUEL [Suspect]
     Route: 048
     Dates: start: 20050101, end: 20051212
  7. SEROQUEL [Suspect]
     Route: 048
     Dates: start: 20050101, end: 20051212
  8. SEROQUEL [Suspect]
     Route: 048
     Dates: start: 20050101, end: 20051212
  9. SEROQUEL [Suspect]
     Route: 048
     Dates: start: 20060315
  10. SEROQUEL [Suspect]
     Route: 048
     Dates: start: 20060315
  11. SEROQUEL [Suspect]
     Route: 048
     Dates: start: 20060315
  12. SEROQUEL [Suspect]
     Route: 048
     Dates: start: 20060315
  13. RISPERDAL [Concomitant]
  14. PREVACID [Concomitant]
     Route: 048
     Dates: start: 20051011
  15. NALTREXONE [Concomitant]
     Route: 048
     Dates: start: 20051205

REACTIONS (2)
  - ALCOHOLIC PANCREATITIS [None]
  - DIABETES MELLITUS [None]
